FAERS Safety Report 25956117 (Version 1)
Quarter: 2025Q4

REPORT INFORMATION
  Report Type: Spontaneous
  Country: US (occurrence: US)
  Receive Date: 20251024
  Receipt Date: 20251024
  Transmission Date: 20260118
  Serious: Yes (Hospitalization)
  Sender: ACCORD
  Company Number: US-Accord-509957

PATIENT
  Age: 74 Year
  Sex: Male

DRUGS (2)
  1. METHOTREXATE [Suspect]
     Active Substance: METHOTREXATE
     Indication: Arthritis
     Dosage: THE PATIENT WAS PRESCRIBED MTX 20 MG WEEKLY, BUT IT WAS TRANSCRIBED TO 20 MG DAILY
  2. HYDROXYCHLOROQUINE [Concomitant]
     Active Substance: HYDROXYCHLOROQUINE
     Indication: Arthritis

REACTIONS (9)
  - Leukoencephalopathy [Unknown]
  - Stomatitis [Unknown]
  - Leukopenia [Unknown]
  - Neutropenia [Unknown]
  - Pulmonary fibrosis [Unknown]
  - Rash pustular [Unknown]
  - Transcription medication error [Unknown]
  - Inappropriate schedule of product administration [Unknown]
  - Accidental overdose [Unknown]
